FAERS Safety Report 10724269 (Version 2)
Quarter: 2015Q2

REPORT INFORMATION
  Report Type: Spontaneous
  Country: US (occurrence: US)
  Receive Date: 20150120
  Receipt Date: 20150410
  Transmission Date: 20150821
  Serious: Yes (Life-Threatening, Hospitalization, Other)
  Sender: FDA-Public Use
  Company Number: US-BAYER-2015-007141

PATIENT
  Age: 28 Year
  Sex: Female
  Weight: 52.15 kg

DRUGS (1)
  1. MIRENA [Suspect]
     Active Substance: LEVONORGESTREL
     Indication: CONTRACEPTION
     Dosage: 20 MCG/24HR, CONT
     Route: 015
     Dates: start: 200912, end: 20130109

REACTIONS (9)
  - Uterine perforation [None]
  - Endometriosis [None]
  - Pelvic pain [None]
  - Device issue [None]
  - Injury [None]
  - Abdominal pain [None]
  - Infection [None]
  - General physical health deterioration [None]
  - Pelvic adhesions [None]

NARRATIVE: CASE EVENT DATE: 201001
